FAERS Safety Report 8604271 (Version 4)
Quarter: 2012Q4

REPORT INFORMATION
  Report Type: 
  Country: US (occurrence: US)
  Receive Date: 20120608
  Receipt Date: 20121025
  Transmission Date: 20130627
  Serious: Yes (Other)
  Sender: FDA-Public Use
  Company Number: US-PFIZER INC-2012135308

PATIENT
  Age: 66 Year
  Sex: Male
  Weight: 85.26 kg

DRUGS (11)
  1. PROTONIX [Suspect]
     Indication: GASTROOESOPHAGEAL REFLUX DISEASE
     Dosage: 40 mg, as needed (up to two times in a day)
     Route: 048
  2. PROTONIX [Suspect]
     Dosage: 40 mg, daily
     Route: 048
  3. DIGOXIN [Concomitant]
     Indication: ATRIAL FIBRILLATION
     Dosage: 0.125 mg, 1x/day (morning)
  4. MESALAMINE [Concomitant]
     Indication: COLITIS ULCERATIVE
     Dosage: 2 DF, 1x/day (morning)
     Route: 048
  5. ASPIRIN [Concomitant]
     Indication: CARDIAC DISORDER
     Dosage: 81 mg, daily
  6. CITALOPRAM HYDROBROMIDE [Concomitant]
     Dosage: 10 mg, 1x/day (morning)
  7. GABAPENTIN [Concomitant]
     Dosage: 300 mg, 2x/day
     Route: 048
  8. FISH OIL [Concomitant]
     Indication: BLOOD TRIGLYCERIDES INCREASED
     Dosage: UNK
  9. MEGARED [Concomitant]
     Indication: BLOOD TRIGLYCERIDES INCREASED
     Dosage: UNK
  10. CENTRUM SILVER [Concomitant]
     Indication: VITAMIN SUPPLEMENTATION
     Dosage: UNK
  11. ZOFRAN [Concomitant]
     Indication: RADIOTHERAPY
     Dosage: UNK

REACTIONS (8)
  - Anal cancer [Unknown]
  - Heart rate irregular [Unknown]
  - Weight decreased [Unknown]
  - Blood pressure increased [Unknown]
  - Anxiety [Unknown]
  - Nervousness [Unknown]
  - Pain [Unknown]
  - Blood thyroid stimulating hormone decreased [Unknown]
